FAERS Safety Report 16834096 (Version 1)
Quarter: 2019Q3

REPORT INFORMATION
  Report Type: Spontaneous
  Country: IT (occurrence: IT)
  Receive Date: 20190920
  Receipt Date: 20190920
  Transmission Date: 20191005
  Serious: Yes (Other)
  Sender: FDA-Public Use
  Company Number: IT-SA-2019SA255887

PATIENT
  Age: 63 Year
  Sex: Male

DRUGS (2)
  1. LANTUS [Suspect]
     Active Substance: INSULIN GLARGINE
     Indication: DIABETES MELLITUS
     Dosage: 8 IU, QD
     Route: 059
     Dates: start: 20091103, end: 20190623
  2. NOVORAPID [Suspect]
     Active Substance: INSULIN ASPART
     Indication: DIABETES MELLITUS
     Dosage: 17 IU, QD
     Route: 059
     Dates: start: 20091103, end: 20190623

REACTIONS (4)
  - Hypoglycaemia [Recovering/Resolving]
  - Drug interaction [Recovering/Resolving]
  - Medication error [Unknown]
  - Asthenia [Recovering/Resolving]

NARRATIVE: CASE EVENT DATE: 20190623
